FAERS Safety Report 7711757-6 (Version None)
Quarter: 2011Q3

REPORT INFORMATION
  Report Type: 
  Country: None (occurrence: None)
  Receive Date: 20110826
  Receipt Date: 20110817
  Transmission Date: 20111222
  Serious: Yes (Other)
  Sender: FDA-Public Use
  Company Number: US-CUBIST-2011S1000534

PATIENT

DRUGS (12)
  1. ALL OTHER THERAPEUTIC PRODUCTS [Concomitant]
     Indication: CELLULITIS
     Dosage: DOSE UNIT:U UNKNOWN
     Route: 065
  2. VANCOMYCIN [Concomitant]
     Indication: SEPSIS
     Dosage: DOSE UNIT:U UNKNOWN
     Route: 065
  3. LINEZOLID [Concomitant]
     Indication: SEPSIS
     Dosage: DOSE UNIT:U UNKNOWN
     Route: 065
  4. ALL OTHER THERAPEUTIC PRODUCTS [Concomitant]
     Indication: SEPSIS
     Dosage: DOSE UNIT:U UNKNOWN
     Route: 065
  5. CUBICIN [Suspect]
     Indication: CELLULITIS
     Dosage: DOSE UNIT:U UNKNOWN
     Route: 065
  6. LINEZOLID [Concomitant]
     Indication: STAPHYLOCOCCAL BACTERAEMIA
     Dosage: DOSE UNIT:U UNKNOWN
     Route: 065
  7. LINEZOLID [Concomitant]
     Indication: CELLULITIS
     Dosage: DOSE UNIT:U UNKNOWN
     Route: 065
  8. CUBICIN [Suspect]
     Indication: SEPSIS
     Dosage: DOSE UNIT:U UNKNOWN
     Route: 065
  9. ALL OTHER THERAPEUTIC PRODUCTS [Concomitant]
     Indication: STAPHYLOCOCCAL BACTERAEMIA
     Dosage: DOSE UNIT:U UNKNOWN
     Route: 065
  10. VANCOMYCIN [Concomitant]
     Indication: CELLULITIS
     Dosage: DOSE UNIT:U UNKNOWN
     Route: 065
  11. CUBICIN [Suspect]
     Indication: STAPHYLOCOCCAL BACTERAEMIA
     Dosage: DOSE UNIT:U UNKNOWN
     Route: 065
  12. VANCOMYCIN [Concomitant]
     Indication: STAPHYLOCOCCAL BACTERAEMIA
     Dosage: DOSE UNIT:U UNKNOWN
     Route: 065

REACTIONS (4)
  - OSTEOMYELITIS [None]
  - EXTRADURAL ABSCESS [None]
  - PSOAS ABSCESS [None]
  - DRUG INEFFECTIVE [None]
